FAERS Safety Report 25254258 (Version 1)
Quarter: 2025Q2

REPORT INFORMATION
  Report Type: Spontaneous
  Country: US (occurrence: US)
  Receive Date: 20250430
  Receipt Date: 20250430
  Transmission Date: 20250716
  Serious: No
  Sender: BIOFRONTERA BIOSCIENCE
  Company Number: US-Biofrontera-2025BIO00051

PATIENT
  Sex: Female

DRUGS (2)
  1. AMELUZ [Suspect]
     Active Substance: AMINOLEVULINIC ACID HYDROCHLORIDE
     Indication: Actinic keratosis
     Route: 050
     Dates: start: 20250226, end: 20250228
  2. DEVICE [Suspect]
     Active Substance: DEVICE
     Indication: Actinic keratosis
     Dates: start: 20250226, end: 20250228

REACTIONS (2)
  - Vomiting [Recovered/Resolved]
  - Vomiting [Recovered/Resolved]

NARRATIVE: CASE EVENT DATE: 20250226
